FAERS Safety Report 23307867 (Version 1)
Quarter: 2023Q4

REPORT INFORMATION
  Report Type: Spontaneous
  Country: CA (occurrence: CA)
  Receive Date: 20231218
  Receipt Date: 20231218
  Transmission Date: 20240109
  Serious: Yes (Other)
  Sender: FDA-Public Use
  Company Number: CA-APOTEX-2023AP017957

PATIENT

DRUGS (3)
  1. DEXAMETHASONE [Suspect]
     Active Substance: DEXAMETHASONE
     Indication: Plasma cell myeloma refractory
     Dosage: 40 MG (20 MG AGE MORE THAN 75 YEARS), Q.WK.
     Route: 065
  2. POMALIDOMIDE [Suspect]
     Active Substance: POMALIDOMIDE
     Indication: Plasma cell myeloma refractory
     Dosage: 4 MILLIGRAM, FOR 21/28 DAYS
     Route: 065
  3. BELANTAMAB MAFODOTIN [Suspect]
     Active Substance: BELANTAMAB MAFODOTIN
     Indication: Plasma cell myeloma refractory
     Dosage: 1.92 MG/KG Q4W OR 2.5 MG/KG Q4W, Q8W OR Q12W), OR SPLIT EQUALLY (2.5 OR 3.4 MG/KG) ON DAYS 1 AND 8 Q
     Route: 042

REACTIONS (1)
  - Pneumonia [Unknown]
